FAERS Safety Report 7712089-2 (Version None)
Quarter: 2011Q3

REPORT INFORMATION
  Report Type: 
  Country: None (occurrence: None)
  Receive Date: 20110826
  Receipt Date: 20110817
  Transmission Date: 20111222
  Serious: Yes (Death, Hospitalization)
  Sender: FDA-Public Use
  Company Number: DE-AMGEN-DEUSP2011009566

PATIENT
  Sex: Female

DRUGS (2)
  1. METHOTREXATE [Concomitant]
  2. PROLIA [Suspect]
     Indication: OSTEOPOROSIS
     Dosage: UNK

REACTIONS (14)
  - OSTEOPOROSIS [None]
  - THROMBOCYTOPENIA [None]
  - BRADYARRHYTHMIA [None]
  - ENTERITIS [None]
  - GENERAL PHYSICAL HEALTH DETERIORATION [None]
  - APHAGIA [None]
  - EMPHYSEMA [None]
  - HYPERTHYROIDISM [None]
  - OEDEMA MOUTH [None]
  - ORAL MUCOSAL ERUPTION [None]
  - LEUKOPENIA [None]
  - DEHYDRATION [None]
  - HYPERSENSITIVITY [None]
  - RHEUMATOID ARTHRITIS [None]
